FAERS Safety Report 11924003 (Version 2)
Quarter: 2016Q1

REPORT INFORMATION
  Report Type: Report from Study
  Country: US (occurrence: US)
  Receive Date: 20160118
  Receipt Date: 20160129
  Transmission Date: 20160526
  Serious: Yes (Other)
  Sender: FDA-Public Use
  Company Number: US-BAYER-2015-465545

PATIENT
  Age: 56 Year
  Sex: Female

DRUGS (2)
  1. STIVARGA [Suspect]
     Active Substance: REGORAFENIB
     Indication: COLORECTAL CANCER METASTATIC
     Dosage: 160 MG, QD
     Route: 048
     Dates: start: 20151103, end: 201512
  2. STIVARGA [Suspect]
     Active Substance: REGORAFENIB
     Indication: COLORECTAL CANCER METASTATIC
     Dosage: DAILY DOSE 80 MG
     Route: 048

REACTIONS (24)
  - Dehydration [None]
  - Diarrhoea [Recovered/Resolved]
  - Musculoskeletal chest pain [None]
  - Abdominal pain [None]
  - Fatigue [Not Recovered/Not Resolved]
  - Weight decreased [None]
  - Scab [None]
  - Myalgia [None]
  - Fatigue [Not Recovered/Not Resolved]
  - Arthralgia [None]
  - Blood pressure increased [Recovering/Resolving]
  - Vomiting [Not Recovered/Not Resolved]
  - Blood pressure decreased [None]
  - Speech disorder [Recovering/Resolving]
  - Skin exfoliation [None]
  - Diarrhoea [Not Recovered/Not Resolved]
  - Decreased appetite [None]
  - Asthenia [Not Recovered/Not Resolved]
  - Nausea [Not Recovered/Not Resolved]
  - Dysphagia [None]
  - Swollen tongue [Recovering/Resolving]
  - Headache [Recovering/Resolving]
  - Rash pruritic [None]
  - Product use issue [None]

NARRATIVE: CASE EVENT DATE: 2015
